FAERS Safety Report 19455060 (Version 1)
Quarter: 2021Q2

REPORT INFORMATION
  Report Type: Spontaneous
  Country: US (occurrence: US)
  Receive Date: 20210623
  Receipt Date: 20210623
  Transmission Date: 20210717
  Serious: No
  Sender: FDA-Public Use
  Company Number: US-LUNDBECK-DKLU3033669

PATIENT
  Age: 79 Year
  Sex: Male

DRUGS (4)
  1. NORTHERA [Suspect]
     Active Substance: DROXIDOPA
     Indication: ORTHOSTATIC HYPOTENSION
     Dosage: NORTHERA 100 MG /495 QTY/30 DAYS /3X PER DAY
     Route: 048
     Dates: start: 20201109
  2. NORTHERA [Suspect]
     Active Substance: DROXIDOPA
     Indication: SYNCOPE
     Route: 048
  3. NORTHERA [Suspect]
     Active Substance: DROXIDOPA
     Indication: AUTONOMIC NEUROPATHY
     Route: 048
     Dates: start: 20210212
  4. NORTHERA [Suspect]
     Active Substance: DROXIDOPA
     Indication: CARDIOMYOPATHY

REACTIONS (5)
  - Dysarthria [Unknown]
  - Overdose [Unknown]
  - Confusional state [Unknown]
  - Gait inability [Unknown]
  - Product dose omission issue [Unknown]
